FAERS Safety Report 8140878-1 (Version None)
Quarter: 2012Q1

REPORT INFORMATION
  Report Type: 
  Country: None (occurrence: None)
  Receive Date: 20120213
  Receipt Date: 20120203
  Transmission Date: 20120608
  Serious: Yes (Hospitalization)
  Sender: FDA-Public Use
  Company Number: 1187454

PATIENT
  Age: 69 Year
  Sex: Female

DRUGS (5)
  1. (RANIDIL) [Concomitant]
  2. DECADRON [Concomitant]
  3. (ONDANSETRON /00955301/) [Concomitant]
  4. PACLITAXEL [Suspect]
     Indication: METASTASES TO ABDOMINAL CAVITY
     Dosage: 300 MG MILLIGRAM(S), INTRAVENOUS DRIP
     Route: 041
     Dates: start: 20120125, end: 20120125
  5. (TRIMETON /00072502/) [Concomitant]

REACTIONS (2)
  - CARDIO-RESPIRATORY ARREST [None]
  - LOSS OF CONSCIOUSNESS [None]
